FAERS Safety Report 15490225 (Version 1)
Quarter: 2018Q4

REPORT INFORMATION
  Report Type: Spontaneous
  Country: PK (occurrence: PK)
  Receive Date: 20181011
  Receipt Date: 20181011
  Transmission Date: 20190205
  Serious: Yes (Other)
  Sender: FDA-Public Use
  Company Number: PK-SA-2018SA279024

PATIENT

DRUGS (1)
  1. APIDRA [Suspect]
     Active Substance: INSULIN GLULISINE
     Indication: DIABETES MELLITUS
     Dosage: 24 IU, TID
     Route: 058
     Dates: start: 20180828, end: 20181005

REACTIONS (3)
  - Product use issue [Unknown]
  - Hypoaesthesia [Unknown]
  - Hyperglycaemia [Not Recovered/Not Resolved]
